FAERS Safety Report 15908213 (Version 1)
Quarter: 2019Q1

REPORT INFORMATION
  Report Type: Spontaneous
  Country: CN (occurrence: CN)
  Receive Date: 20190204
  Receipt Date: 20190204
  Transmission Date: 20190417
  Serious: Yes (Other)
  Sender: FDA-Public Use
  Company Number: CN-PFIZER INC-2019038943

PATIENT
  Age: 6 Year
  Sex: Female
  Weight: 19 kg

DRUGS (8)
  1. METHYLPREDNISOLONE SODIUM SUCCINATE. [Suspect]
     Active Substance: METHYLPREDNISOLONE SODIUM SUCCINATE
     Indication: MYELITIS
     Dosage: 0.3 G, 1X/DAY
     Route: 041
     Dates: start: 20181127, end: 20181129
  2. GLUCOSE AND SODIUM CHLORIDE [Concomitant]
     Dosage: 50 ML, 1X/DAY
     Route: 041
     Dates: start: 2018
  3. ACYCLOVIR [ACICLOVIR] [Suspect]
     Active Substance: ACYCLOVIR
     Indication: MYELITIS
     Dosage: 0.2 G, Q8H
     Route: 041
     Dates: start: 20181126, end: 20181208
  4. METHYLPREDNISOLONE SODIUM SUCCINATE. [Suspect]
     Active Substance: METHYLPREDNISOLONE SODIUM SUCCINATE
     Dosage: 0.2 G, 1X/DAY
     Route: 041
     Dates: start: 20181204, end: 20181206
  5. COMPOUND GLYCYRRHIZIN INJECTION (CYSTEINE\GLYCINE\GLYCYRRHIZIN) [Suspect]
     Active Substance: CYSTEINE\GLYCINE\GLYCYRRHIZIN
     Dosage: 20 ML, 1X/DAY
     Route: 041
     Dates: start: 2018
  6. SODIUM CHLORIDE. [Concomitant]
     Active Substance: SODIUM CHLORIDE
     Indication: MYELITIS
     Dosage: 100 ML, Q8H
     Route: 041
     Dates: start: 20181126, end: 20181208
  7. GLUCOSE AND SODIUM CHLORIDE [Concomitant]
     Dosage: 250 ML, 1X/DAY (4:1 GLUCOSE AND SODIUM CHLORIDE INJECTION)
     Route: 041
     Dates: start: 20181127, end: 20181129
  8. GLUCOSE AND SODIUM CHLORIDE [Concomitant]
     Dosage: 250 ML, 1X/DAY (4:1 GLUCOSE AND SODIUM CHLORIDE INJECTION)
     Route: 041
     Dates: start: 20181204, end: 20181206

REACTIONS (5)
  - Aspartate aminotransferase increased [Recovering/Resolving]
  - Product use in unapproved indication [Unknown]
  - Condition aggravated [Recovering/Resolving]
  - Alanine aminotransferase increased [Recovering/Resolving]
  - Hepatic function abnormal [Recovering/Resolving]

NARRATIVE: CASE EVENT DATE: 20181127
